FAERS Safety Report 6105601-0 (Version None)
Quarter: 2009Q1

REPORT INFORMATION
  Report Type: 
  Country: None (occurrence: None)
  Receive Date: 20090306
  Receipt Date: 20090223
  Transmission Date: 20090719
  Serious: Yes (Hospitalization)
  Sender: FDA-Public Use
  Company Number: JP-BAXTER-2009BH003451

PATIENT
  Age: 16 Year
  Sex: Male

DRUGS (5)
  1. ENDOXAN BAXTER [Suspect]
     Indication: PINEAL PARENCHYMAL NEOPLASM MALIGNANT
     Route: 042
  2. VEPESID [Suspect]
     Indication: PINEAL PARENCHYMAL NEOPLASM MALIGNANT
     Route: 041
  3. CISPLATIN [Suspect]
     Indication: PINEAL PARENCHYMAL NEOPLASM MALIGNANT
     Route: 041
  4. ONCOVIN [Suspect]
     Indication: PINEAL PARENCHYMAL NEOPLASM MALIGNANT
     Route: 042
  5. METHOTREXATE [Suspect]
     Indication: PINEAL PARENCHYMAL NEOPLASM MALIGNANT
     Route: 065

REACTIONS (1)
  - CONFUSIONAL STATE [None]
